FAERS Safety Report 9341182 (Version 3)
Quarter: 2013Q2

REPORT INFORMATION
  Report Type: Report from Study
  Country: HU (occurrence: HU)
  Receive Date: 20130611
  Receipt Date: 20130625
  Transmission Date: 20140414
  Serious: Yes (Death, Hospitalization, Other)
  Sender: FDA-Public Use
  Company Number: HU-ROCHE-1228651

PATIENT
  Sex: Male

DRUGS (5)
  1. XELODA [Suspect]
     Indication: GASTRIC CANCER
     Dosage: DAILY 2 X 1600 MG
     Route: 048
     Dates: start: 20130506
  2. CISPLATIN [Concomitant]
     Indication: GASTRIC CANCER
     Route: 065
     Dates: start: 20130506
  3. CISPLATIN [Concomitant]
     Route: 065
  4. EPIRUBICIN [Concomitant]
     Indication: GASTRIC CANCER
     Route: 065
     Dates: start: 20130506
  5. EPIRUBICIN [Concomitant]
     Route: 065
     Dates: start: 20130506

REACTIONS (10)
  - Metabolic disorder [Fatal]
  - Thrombocytopenia [Fatal]
  - Leukopenia [Fatal]
  - Mucosal inflammation [Not Recovered/Not Resolved]
  - Diarrhoea [Unknown]
  - Hyperkalaemia [Recovered/Resolved]
  - Glomerular filtration rate decreased [Recovering/Resolving]
  - Neutropenia [Unknown]
  - Asthenia [Unknown]
  - Decreased appetite [Unknown]
